FAERS Safety Report 26185645 (Version 1)
Quarter: 2025Q4

REPORT INFORMATION
  Report Type: Spontaneous
  Country: US (occurrence: None)
  Receive Date: 20251219
  Receipt Date: 20251219
  Transmission Date: 20260117
  Serious: Yes (unspecified)
  Sender: FDA-CTU
  Company Number: None

PATIENT
  Age: 22 Year
  Sex: Female
  Weight: 70.65 kg

DRUGS (1)
  1. ODACTRA [Suspect]
     Active Substance: DERMATOPHAGOIDES FARINAE\DERMATOPHAGOIDES PTERONYSSINUS
     Indication: Mite allergy
     Dosage: DAILY SUBLINGUAL
     Route: 060
     Dates: start: 20250321, end: 20251217

REACTIONS (2)
  - Gastrooesophageal reflux disease [None]
  - Tooth erosion [None]

NARRATIVE: CASE EVENT DATE: 20251219
